FAERS Safety Report 7285202-1 (Version None)
Quarter: 2011Q1

REPORT INFORMATION
  Report Type: 
  Country: None (occurrence: None)
  Receive Date: 20110210
  Receipt Date: 20110131
  Transmission Date: 20110831
  Serious: Yes (Death, Other)
  Sender: FDA-Public Use
  Company Number: JP-MPIJNJ-2010-06101

PATIENT

DRUGS (5)
  1. VELCADE [Suspect]
     Indication: MULTIPLE MYELOMA
     Dosage: 1.3 MG/M2, UNK
     Route: 042
  2. GABAPEN [Concomitant]
     Indication: NEUROPATHY PERIPHERAL
     Dosage: 800 MG, UNK
     Route: 048
  3. LOPEMIN [Concomitant]
     Route: 048
  4. ITRIZOLE [Concomitant]
     Indication: INFECTION PROPHYLAXIS
     Dosage: 200 MG, UNK
     Route: 048
     Dates: start: 20101117
  5. VELCADE [Suspect]
     Dosage: 1.9 MG, UNK
     Route: 042
     Dates: start: 20101119, end: 20101129

REACTIONS (4)
  - DIARRHOEA [None]
  - ENTEROCOLITIS [None]
  - DISEASE PROGRESSION [None]
  - PNEUMONIA [None]
